FAERS Safety Report 11240982 (Version 1)
Quarter: 2015Q3

REPORT INFORMATION
  Report Type: Report from Study
  Country: US (occurrence: US)
  Receive Date: 20150706
  Receipt Date: 20150706
  Transmission Date: 20151125
  Serious: Yes (Other)
  Sender: FDA-Public Use
  Company Number: US-BAXALTA-2015BAX010358

PATIENT
  Sex: Female

DRUGS (1)
  1. HUMAN NORMAL IMMUNOGLOBULIN; HYALURONIDASE [Suspect]
     Active Substance: HUMAN IMMUNOGLOBULIN G\HYALURONIDASE RECOMBINANT HUMAN
     Indication: IMMUNODEFICIENCY COMMON VARIABLE
     Dosage: 30 G, 1X A MONTH
     Route: 058

REACTIONS (4)
  - Infusion site erythema [Unknown]
  - Infusion site induration [Recovered/Resolved]
  - Pneumonia [Recovered/Resolved]
  - Infusion site swelling [Unknown]
